FAERS Safety Report 6607916-6 (Version None)
Quarter: 2010Q1

REPORT INFORMATION
  Report Type: 
  Country: None (occurrence: None)
  Receive Date: 20100301
  Receipt Date: 20100222
  Transmission Date: 20100710
  Serious: Yes (Death)
  Sender: FDA-Public Use
  Company Number: CHPA2010US03707

PATIENT
  Age: 69 Year
  Sex: Female

DRUGS (10)
  1. ACETYLSALICYLIC ACID SRT [Suspect]
     Route: 048
  2. ACETAMINOPHEN [Suspect]
  3. QUETIAPINE [Suspect]
  4. DULOXETINE HYDROCHLORIDE [Suspect]
  5. CLOPIDOGREL [Suspect]
  6. ZOLPIDEM [Suspect]
  7. TIOTROPIUM [Suspect]
  8. FLUTICASONE W/SALMETEROL [Suspect]
  9. BENZODIAZEPINES [Suspect]
  10. SOLIFENACIN [Suspect]

REACTIONS (1)
  - COMPLETED SUICIDE [None]
